FAERS Safety Report 14604223 (Version 1)
Quarter: 2018Q1

REPORT INFORMATION
  Report Type: Spontaneous
  Country: US (occurrence: US)
  Receive Date: 20180306
  Receipt Date: 20180306
  Transmission Date: 20180509
  Serious: Yes (Hospitalization)
  Sender: FDA-Public Use
  Company Number: None

PATIENT
  Age: 17 Year
  Sex: Male

DRUGS (2)
  1. TACROLIMUS 1MG ACCORD [Suspect]
     Active Substance: TACROLIMUS
     Indication: RENAL TRANSPLANT
     Dosage: DOSE - 3MG EVERY MORNING AND 2MG EVERY
     Route: 048
     Dates: start: 20161024
  2. MYCOPHENOLATE 250MG ACCORD HEALTHCARE [Suspect]
     Active Substance: MYCOPHENOLIC ACID
     Indication: RENAL TRANSPLANT
     Route: 048
     Dates: start: 20161024

REACTIONS (6)
  - Nausea [None]
  - Chills [None]
  - Pyrexia [None]
  - Vomiting [None]
  - Influenza [None]
  - Arthropod bite [None]

NARRATIVE: CASE EVENT DATE: 20180220
